FAERS Safety Report 8623654-2 (Version None)
Quarter: 2012Q3

REPORT INFORMATION
  Report Type: 
  Country: None (occurrence: None)
  Receive Date: 20120827
  Receipt Date: 20120823
  Transmission Date: 20120928
  Serious: Yes (Other)
  Sender: FDA-Public Use
  Company Number: US-PFIZER INC-2012207912

PATIENT
  Age: 51 Year

DRUGS (1)
  1. NORVASC [Suspect]
     Dosage: 10 MG, 1X/DAY

REACTIONS (2)
  - HEPATITIS C [None]
  - HYPERTENSION [None]
